FAERS Safety Report 16046863 (Version 1)
Quarter: 2019Q1

REPORT INFORMATION
  Report Type: Spontaneous
  Country: US (occurrence: US)
  Receive Date: 20190307
  Receipt Date: 20190307
  Transmission Date: 20190418
  Serious: No
  Sender: FDA-Public Use
  Company Number: US-PFIZER INC-2019094080

PATIENT
  Age: 41 Year
  Sex: Male
  Weight: 90.72 kg

DRUGS (2)
  1. PROTONIX [Suspect]
     Active Substance: PANTOPRAZOLE SODIUM
     Dosage: UNK, 2X/DAY (ONE PILL TWICE PER DAY BY MOUTH)
     Route: 048
  2. PROTONIX [Suspect]
     Active Substance: PANTOPRAZOLE SODIUM
     Indication: DYSPEPSIA
     Dosage: UNK, 1X/DAY
     Route: 048

REACTIONS (3)
  - Headache [Not Recovered/Not Resolved]
  - Drug ineffective [Recovering/Resolving]
  - Product use issue [Unknown]
